FAERS Safety Report 7996416-7 (Version None)
Quarter: 2011Q4

REPORT INFORMATION
  Report Type: 
  Country: None (occurrence: None)
  Receive Date: 20111220
  Receipt Date: 20111216
  Transmission Date: 20120403
  Serious: Yes (Death)
  Sender: FDA-Public Use
  Company Number: US-ASTRAZENECA-2011SE76482

PATIENT
  Age: 37 Year
  Sex: Female

DRUGS (6)
  1. ALPRAZOLAM [Suspect]
     Route: 048
  2. SKELETAL MUSCLE RELAXANT [Suspect]
     Route: 048
  3. ACETAMINOPHEN AND HYDROCODONE BITARTRATE [Suspect]
     Route: 048
  4. QUETIAPINE [Suspect]
     Route: 048
  5. DILTIAZEM HCL [Suspect]
     Route: 048
  6. MEPROBAMATE [Suspect]
     Route: 048

REACTIONS (3)
  - DRUG ABUSE [None]
  - TOXICITY TO VARIOUS AGENTS [None]
  - CARDIO-RESPIRATORY ARREST [None]
